FAERS Safety Report 13613175 (Version 3)
Quarter: 2017Q2

REPORT INFORMATION
  Report Type: Report from Study
  Country: US (occurrence: US)
  Receive Date: 20170605
  Receipt Date: 20170621
  Transmission Date: 20170830
  Serious: Yes (Other)
  Sender: FDA-Public Use
  Company Number: US-GILEAD-2017-0275206

PATIENT
  Age: 58 Year
  Sex: Female

DRUGS (1)
  1. IDELALISIB [Suspect]
     Active Substance: IDELALISIB
     Indication: CHRONIC LYMPHOCYTIC LEUKAEMIA
     Dosage: 150 MG, BID
     Route: 048
     Dates: start: 201603

REACTIONS (12)
  - Diarrhoea [Unknown]
  - Fatigue [Unknown]
  - Platelet count decreased [Unknown]
  - Abdominal mass [Unknown]
  - Lymphadenopathy [Unknown]
  - Weight decreased [Unknown]
  - Oral herpes [Unknown]
  - White blood cell count increased [Unknown]
  - Depression [Unknown]
  - Malaise [Unknown]
  - Disease progression [Unknown]
  - Drug ineffective [Unknown]
